FAERS Safety Report 9131336 (Version 1)
Quarter: 2013Q1

REPORT INFORMATION
  Report Type: Report from Study
  Country: US (occurrence: US)
  Receive Date: 20130301
  Receipt Date: 20130301
  Transmission Date: 20140127
  Serious: No
  Sender: FDA-Public Use
  Company Number: US-MYLANLABS-2012S1002173

PATIENT
  Age: 29 Year
  Sex: Female

DRUGS (2)
  1. AMNESTEEM CAPSULES [Suspect]
     Indication: ACNE CYSTIC
     Route: 048
     Dates: start: 20111226, end: 20120106
  2. ORTHO TRI CYCLEN [Concomitant]

REACTIONS (5)
  - Urticaria [Recovered/Resolved]
  - Headache [Recovered/Resolved]
  - Lip dry [Recovered/Resolved]
  - Lip haemorrhage [Recovered/Resolved]
  - Cheilitis [Recovered/Resolved]
